FAERS Safety Report 15131794 (Version 1)
Quarter: 2018Q3

REPORT INFORMATION
  Report Type: Spontaneous
  Country: US (occurrence: US)
  Receive Date: 20180711
  Receipt Date: 20180711
  Transmission Date: 20181010
  Serious: Yes (Other)
  Sender: FDA-Public Use
  Company Number: US-MEDICURE INC.-2051803

PATIENT
  Sex: Male

DRUGS (1)
  1. AGGRASTAT [Suspect]
     Active Substance: TIROFIBAN HYDROCHLORIDE
     Indication: ANTIPLATELET THERAPY
     Route: 040

REACTIONS (3)
  - Drug prescribing error [Recovered/Resolved]
  - Epistaxis [Recovered/Resolved]
  - Gingival bleeding [Recovered/Resolved]
